FAERS Safety Report 7489208-9 (Version None)
Quarter: 2011Q2

REPORT INFORMATION
  Report Type: 
  Country: None (occurrence: None)
  Receive Date: 20110518
  Receipt Date: 20110512
  Transmission Date: 20111010
  Serious: Yes (Other)
  Sender: FDA-Public Use
  Company Number: US-TYCO HEALTHCARE/MALLINCKRODT-T201100960

PATIENT
  Sex: Female

DRUGS (1)
  1. METHADOSE [Suspect]
     Indication: DRUG DEPENDENCE
     Dosage: MEDIUM DOSING GROUP (51-100 MG/DAY)
     Route: 048

REACTIONS (1)
  - PLACENTA ACCRETA [None]
